FAERS Safety Report 12572720 (Version 1)
Quarter: 2016Q3

REPORT INFORMATION
  Report Type: Spontaneous
  Country: US (occurrence: US)
  Receive Date: 20160720
  Receipt Date: 20160720
  Transmission Date: 20161109
  Serious: No
  Sender: FDA-Public Use
  Company Number: US-ALEXION-A201605227

PATIENT
  Age: 14 Year
  Sex: Male

DRUGS (1)
  1. STRENSIQ [Suspect]
     Active Substance: ASFOTASE ALFA
     Indication: HYPOPHOSPHATASIA
     Dosage: 2 MG/KG, TIW
     Route: 058
     Dates: start: 20160707

REACTIONS (2)
  - Wrong technique in product usage process [Recovered/Resolved]
  - Wrong device used [Recovered/Resolved]

NARRATIVE: CASE EVENT DATE: 20160707
